FAERS Safety Report 10181718 (Version 2)
Quarter: 2014Q2

REPORT INFORMATION
  Report Type: Spontaneous
  Country: US (occurrence: US)
  Receive Date: 20140519
  Receipt Date: 20140519
  Transmission Date: 20141212
  Serious: No
  Sender: FDA-Public Use
  Company Number: US-BANPHARM-20131409

PATIENT
  Sex: Female

DRUGS (1)
  1. IBUPROFEN CAPSULES 200 MG [Suspect]
     Dosage: 2 DF, ONCE,
     Route: 048

REACTIONS (2)
  - Hypoaesthesia [Unknown]
  - Feeling abnormal [Unknown]
